FAERS Safety Report 13987812 (Version 2)
Quarter: 2018Q4

REPORT INFORMATION
  Report Type: Report from Study
  Country: DE (occurrence: DE)
  Receive Date: 20170919
  Receipt Date: 20181120
  Transmission Date: 20190204
  Serious: Yes (Hospitalization)
  Sender: FDA-Public Use
  Company Number: DE-JNJFOC-20170906864

PATIENT
  Age: 46 Year
  Sex: Male
  Weight: 92 kg

DRUGS (16)
  1. AMOXICILLIN. [Concomitant]
     Active Substance: AMOXICILLIN
     Indication: NASOPHARYNGITIS
     Route: 065
     Dates: start: 20161018, end: 20161024
  2. AMOXICILLIN. [Concomitant]
     Active Substance: AMOXICILLIN
     Indication: INFLUENZA
     Route: 065
     Dates: start: 20161018, end: 20161024
  3. ADVANTAN [Concomitant]
     Active Substance: METHYLPREDNISOLONE ACEPONATE
     Indication: DERMATITIS ATOPIC
     Route: 065
     Dates: start: 20170821, end: 201709
  4. ELIDEL [Concomitant]
     Active Substance: PIMECROLIMUS
     Indication: DERMATITIS ATOPIC
     Route: 065
     Dates: start: 20170821
  5. LORATADIN [Concomitant]
     Active Substance: LORATADINE
     Indication: DERMATITIS ATOPIC
     Route: 065
     Dates: start: 2017
  6. CALCIPOTRIENE AND BETAMETHASONE DIPROPIONATE [Concomitant]
     Active Substance: BETAMETHASONE DIPROPIONATE\CALCIPOTRIENE
     Indication: PSORIASIS
     Route: 061
     Dates: start: 20150915
  7. DOREGRIPPIN N [Concomitant]
     Indication: INFLUENZA
     Route: 065
  8. ROSICED [Concomitant]
     Indication: ROSACEA
     Route: 065
     Dates: start: 20170427
  9. KARISON [Concomitant]
     Indication: DERMATITIS ATOPIC
     Route: 065
     Dates: start: 20171127
  10. DEXA GENTAMYCIN [Concomitant]
     Indication: CONJUNCTIVITIS ALLERGIC
     Route: 065
     Dates: start: 20170822, end: 2017
  11. RAMIPRIL. [Concomitant]
     Active Substance: RAMIPRIL
     Indication: HYPERTENSION
     Route: 065
  12. MOMECUTAN [Concomitant]
     Active Substance: MOMETASONE FUROATE
     Indication: DERMATITIS ATOPIC
     Route: 065
     Dates: start: 20171127
  13. USTEKINUMAB [Suspect]
     Active Substance: USTEKINUMAB
     Indication: PSORIASIS
     Route: 058
     Dates: start: 20160922
  14. CALCIPOTRIENE AND BETAMETHASONE DIPROPIONATE [Concomitant]
     Active Substance: BETAMETHASONE DIPROPIONATE\CALCIPOTRIENE
     Indication: PSORIATIC ARTHROPATHY
     Route: 061
     Dates: start: 20150915
  15. MAHONIA AQUIFOLIUM [Concomitant]
     Indication: PSORIASIS
     Route: 061
     Dates: start: 20170124
  16. MAHONIA AQUIFOLIUM [Concomitant]
     Indication: PSORIATIC ARTHROPATHY
     Route: 061
     Dates: start: 20170124

REACTIONS (6)
  - Cerebral infarction [Recovered/Resolved]
  - Left ventricular hypertrophy [Unknown]
  - Leukoencephalopathy [Unknown]
  - Bundle branch block right [Unknown]
  - Arthropod bite [Unknown]
  - Lyme disease [Unknown]

NARRATIVE: CASE EVENT DATE: 20170720
